FAERS Safety Report 8758389 (Version 1)
Quarter: 2012Q4

REPORT INFORMATION
  Report Type: Spontaneous
  Country: US (occurrence: None)
  Receive Date: 20120828
  Receipt Date: 20120828
  Transmission Date: 20130627
  Serious: Yes (Hospitalization)
  Sender: FDA-Public Use
  Company Number: None

PATIENT
  Age: 68 Year
  Sex: Male
  Weight: 76.84 kg

DRUGS (5)
  1. INLYTA [Suspect]
     Indication: VISUAL HALLUCINATIONS
     Route: 048
  2. LORTAB [Concomitant]
  3. METOPROLOL TARTRATE [Concomitant]
  4. SIMVASTATIN [Concomitant]
  5. SOMA [Suspect]

REACTIONS (4)
  - Convulsion [None]
  - Vomiting [None]
  - Headache [None]
  - Hallucination, visual [None]
